FAERS Safety Report 11588727 (Version 1)
Quarter: 2015Q4

REPORT INFORMATION
  Report Type: Spontaneous
  Country: US (occurrence: None)
  Receive Date: 20151001
  Receipt Date: 20151001
  Transmission Date: 20160304
  Serious: Yes (Hospitalization)
  Sender: FDA-Public Use
  Company Number: None

PATIENT
  Age: 59 Year

DRUGS (2)
  1. SOVALDI [Suspect]
     Active Substance: SOFOSBUVIR
     Indication: HEPATITIS C
     Dosage: 1 PILL
     Route: 048
     Dates: start: 20150717, end: 20150930
  2. RIBAVIRIN 200MG [Suspect]
     Active Substance: RIBAVIRIN
     Indication: HEPATITIS C
     Route: 048
     Dates: start: 20150717, end: 20150930

REACTIONS (3)
  - Joint dislocation [None]
  - Overdose [None]
  - Respiratory arrest [None]

NARRATIVE: CASE EVENT DATE: 20150922
